FAERS Safety Report 5313620-7 (Version None)
Quarter: 2007Q2

REPORT INFORMATION
  Report Type: 
  Country: None (occurrence: None)
  Receive Date: 20070425
  Receipt Date: 20070417
  Transmission Date: 20071010
  Serious: Yes (Other)
  Sender: FDA-Public Use
  Company Number: 2007SP005754

PATIENT
  Age: 72 Year
  Sex: Male
  Weight: 88 kg

DRUGS (3)
  1. PEG-INTRON [Suspect]
     Indication: HEPATITIS C
     Dosage: 100 MCG;QW;SC
     Route: 058
     Dates: start: 20070205, end: 20070302
  2. REBETOL [Suspect]
     Indication: HEPATITIS C
     Dosage: 200 MG;QD;PO
     Route: 048
     Dates: start: 20070205, end: 20070302
  3. NORVASC [Concomitant]

REACTIONS (5)
  - DERMATITIS EXFOLIATIVE [None]
  - INJECTION SITE DERMATITIS [None]
  - INJECTION SITE ERYTHEMA [None]
  - NO THERAPEUTIC RESPONSE [None]
  - URTICARIA GENERALISED [None]
